FAERS Safety Report 10047385 (Version 3)
Quarter: 2014Q4

REPORT INFORMATION
  Report Type: Spontaneous
  Country: JP (occurrence: None)
  Receive Date: 20140327
  Receipt Date: 20141009
  Transmission Date: 20150528
  Serious: Yes (Other)
  Sender: FDA-Public Use
  Company Number: ABR_01544_2014

PATIENT
  Age: 63 Year
  Sex: Male

DRUGS (1)
  1. GLIADEL [Suspect]
     Active Substance: CARMUSTINE
     Indication: MALIGNANT GLIOMA
     Dosage: [46.2 MG, 6 WAFERS ONCE] INTRACEREBRAL)
     Dates: start: 20131107

REACTIONS (2)
  - Brain oedema [None]
  - Neutropenia [None]

NARRATIVE: CASE EVENT DATE: 2014
